FAERS Safety Report 6326537-6 (Version None)
Quarter: 2009Q3

REPORT INFORMATION
  Report Type: 
  Country: None (occurrence: None)
  Receive Date: 20090825
  Receipt Date: 20090818
  Transmission Date: 20100115
  Serious: Yes (Death)
  Sender: FDA-Public Use
  Company Number: ZA-JNJFOC-20090805509

PATIENT
  Sex: Female
  Weight: 65 kg

DRUGS (1)
  1. REVELLEX [Suspect]
     Indication: RHEUMATOID ARTHRITIS
     Route: 042

REACTIONS (1)
  - DEATH [None]
